FAERS Safety Report 4975713-3 (Version None)
Quarter: 2006Q2

REPORT INFORMATION
  Report Type: 
  Country: None (occurrence: None)
  Receive Date: 20060411
  Receipt Date: 20060327
  Transmission Date: 20061013
  Serious: Yes (Other)
  Sender: FDA-Public Use
  Company Number: 2006BH005972

PATIENT
  Age: 83 Year
  Sex: Female

DRUGS (3)
  1. BALANCED SALT SOLUTION [Suspect]
     Indication: CATARACT OPERATION
     Dosage: 500 ML
  2. BALANCED SALT SOLUTION [Suspect]
  3. KENALOG [Suspect]
     Indication: CATARACT OPERATION

REACTIONS (3)
  - ENDOPHTHALMITIS [None]
  - HYPOPYON [None]
  - STREPTOCOCCAL INFECTION [None]
